FAERS Safety Report 5746181-9 (Version None)
Quarter: 2008Q2

REPORT INFORMATION
  Report Type: 
  Country: None (occurrence: None)
  Receive Date: 20080520
  Receipt Date: 20080506
  Transmission Date: 20081010
  Serious: Yes (Death)
  Sender: FDA-Public Use
  Company Number: 2007-04396

PATIENT
  Age: 63 Year
  Sex: Male
  Weight: 45 kg

DRUGS (6)
  1. VELCADE [Suspect]
     Indication: MULTIPLE MYELOMA
     Dosage: 2.01 MG, INTRAVENOUS
     Route: 042
     Dates: start: 20070313, end: 20070410
  2. LEVOTHYROXINE SODIUM [Concomitant]
  3. ALFAROL (ALFACALCIDOL) [Concomitant]
  4. ANTIBIOTICS [Concomitant]
  5. TIOTROPIUM BROMIDE ^SPIRIVA^ (TIOTROPIUM BROMIDE) [Concomitant]
  6. SULFAMETHOXAZOLE AND TRIMETHOPRIM [Concomitant]

REACTIONS (2)
  - DISEASE PROGRESSION [None]
  - VARICELLA [None]
